FAERS Safety Report 24569875 (Version 2)
Quarter: 2024Q4

REPORT INFORMATION
  Report Type: Spontaneous
  Country: US (occurrence: US)
  Receive Date: 20241031
  Receipt Date: 20241204
  Transmission Date: 20250115
  Serious: Yes (Death, Other)
  Sender: INCYTE
  Company Number: US-INCYTE CORPORATION-2024IN011554

PATIENT

DRUGS (2)
  1. JAKAFI [Suspect]
     Active Substance: RUXOLITINIB
     Indication: Myelofibrosis
     Dosage: 15 MILLIGRAM (1 TABLET IN THE MORNING AND 1 TABLET BEFORE BEDTIME)
     Route: 048
     Dates: start: 202207
  2. JAKAFI [Suspect]
     Active Substance: RUXOLITINIB
     Dosage: 15 MILLIGRAM ON MONDAYS AND FRIDAYS
     Route: 048
     Dates: start: 202407

REACTIONS (2)
  - Death [Fatal]
  - Infection [Unknown]

NARRATIVE: CASE EVENT DATE: 20241021
